FAERS Safety Report 5832566-9 (Version None)
Quarter: 2008Q3

REPORT INFORMATION
  Report Type: 
  Country: None (occurrence: None)
  Receive Date: 20080804
  Receipt Date: 20080722
  Transmission Date: 20090109
  Serious: Yes (Hospitalization)
  Sender: FDA-Public Use
  Company Number: DE-ROCHE-576976

PATIENT
  Sex: Male
  Weight: 37.5 kg

DRUGS (3)
  1. PEGASYS [Suspect]
     Route: 058
     Dates: start: 20080102
  2. RIBAVIRIN [Suspect]
     Dosage: FREQUENCY REPORTED AS 3-0-3, DRUG NAME REPORTED: COPEGUS
     Route: 048
     Dates: start: 20080102
  3. TELAPREVIR [Suspect]
     Dosage: FREQUENCY REPORTED AS: 3-0-3.
     Route: 048
     Dates: start: 20080102, end: 20080326

REACTIONS (5)
  - DEHYDRATION [None]
  - FAECALOMA [None]
  - GENERAL PHYSICAL HEALTH DETERIORATION [None]
  - HAEMOGLOBIN DECREASED [None]
  - PLATELET COUNT DECREASED [None]
